FAERS Safety Report 20583426 (Version 1)
Quarter: 2022Q1

REPORT INFORMATION
  Report Type: Spontaneous
  Country: CN (occurrence: None)
  Receive Date: 20220311
  Receipt Date: 20220311
  Transmission Date: 20220424
  Serious: Yes (Hospitalization)
  Sender: FDA-Public Use
  Company Number: 2022A081867

PATIENT
  Age: 92 Year
  Sex: Male

DRUGS (3)
  1. BUDESONIDE\FORMOTEROL\GLYCOPYRRONIUM [Suspect]
     Active Substance: BUDESONIDE\FORMOTEROL\GLYCOPYRRONIUM
     Indication: Chronic obstructive pulmonary disease
     Dosage: 120 ACTUATIONS PER VIAL, EACH CONTAINING BUDESONIDE 160UG, GLYCOPYRROLATE BROMIDE 7.2UG AND FORMO...
     Route: 055
     Dates: start: 20220216
  2. IRBESARTAN [Concomitant]
     Active Substance: IRBESARTAN
  3. NIFEDIPINE [Concomitant]
     Active Substance: NIFEDIPINE

REACTIONS (4)
  - Chronic obstructive pulmonary disease [Unknown]
  - Wrong technique in product usage process [Unknown]
  - Therapeutic product effect decreased [Unknown]
  - Device defective [Unknown]

NARRATIVE: CASE EVENT DATE: 20220217
